FAERS Safety Report 10150533 (Version 2)
Quarter: 2014Q2

REPORT INFORMATION
  Report Type: Spontaneous
  Country: NL (occurrence: NL)
  Receive Date: 20140502
  Receipt Date: 20140502
  Transmission Date: 20141212
  Serious: Yes (Hospitalization)
  Sender: FDA-Public Use
  Company Number: NL-BAXTER-2014BAX020677

PATIENT
  Age: 55 Year
  Sex: Female

DRUGS (2)
  1. EXTRANEAL, OPLOSSING VOOR PERITONEALE DIALYSE 75G/L [Suspect]
     Indication: PERITONEAL DIALYSIS
     Route: 033
  2. PHYSIONEAL 35 GLUCOSE 1.36% W/V / 13.6 MG/ML, OPLOSSING VOOR PERITONEA [Suspect]
     Indication: PERITONEAL DIALYSIS
     Route: 033

REACTIONS (2)
  - Pain in extremity [Recovered/Resolved]
  - Peripheral vascular disorder [Recovered/Resolved]
